FAERS Safety Report 19845730 (Version 1)
Quarter: 2021Q3

REPORT INFORMATION
  Report Type: Spontaneous
  Country: CN (occurrence: CN)
  Receive Date: 20210916
  Receipt Date: 20210916
  Transmission Date: 20211014
  Serious: Yes (Life-Threatening, Other)
  Sender: FDA-Public Use
  Company Number: CN-009507513-2109CHN002920

PATIENT
  Age: 51 Year
  Sex: Female
  Weight: 49 kg

DRUGS (2)
  1. SODIUM CHLORIDE. [Concomitant]
     Active Substance: SODIUM CHLORIDE
     Dosage: 100 ML, 3 TIMES IN A DAY, INDICATION WAS REPORTED AS SOLVENT
     Route: 041
     Dates: start: 20210820, end: 20210824
  2. TIENAM [Suspect]
     Active Substance: CILASTATIN SODIUM\IMIPENEM
     Indication: ANTI-INFECTIVE THERAPY
     Dosage: 1 G, 3 TIMES IN A DAY
     Route: 041
     Dates: start: 20210820, end: 20210824

REACTIONS (1)
  - Agranulocytosis [Recovering/Resolving]

NARRATIVE: CASE EVENT DATE: 20210824
